FAERS Safety Report 18212550 (Version 1)
Quarter: 2020Q3

REPORT INFORMATION
  Report Type: Spontaneous
  Country: US (occurrence: US)
  Receive Date: 20200828
  Receipt Date: 20200828
  Transmission Date: 20201103
  Serious: Yes (Hospitalization)
  Sender: FDA-Public Use
  Company Number: None

PATIENT
  Age: 13 Year
  Sex: Male

DRUGS (3)
  1. EPOGEN [Suspect]
     Active Substance: ERYTHROPOIETIN
     Indication: ATELECTASIS
     Dosage: ?          OTHER FREQUENCY:3 TIMES PER WEEK;?
     Route: 058
     Dates: start: 20180915
  2. TOBRAMYCIN. [Suspect]
     Active Substance: TOBRAMYCIN
     Indication: ATELECTASIS
     Dosage: ?          OTHER FREQUENCY:BID 28 DAYS/28 OFF;?
     Route: 045
     Dates: start: 20180725
  3. NONE LISTED [Concomitant]

REACTIONS (2)
  - Pneumothorax [None]
  - Pneumonia [None]
